FAERS Safety Report 9614100 (Version 1)
Quarter: 2013Q4

REPORT INFORMATION
  Report Type: Spontaneous
  Country: US (occurrence: US)
  Receive Date: 20131011
  Receipt Date: 20131011
  Transmission Date: 20140711
  Serious: No
  Sender: FDA-Public Use
  Company Number: US-009507513-1310USA004080

PATIENT
  Age: 23 Year
  Sex: Female
  Weight: 58.5 kg

DRUGS (1)
  1. NUVARING [Suspect]
     Indication: CONTRACEPTION
     Dosage: 1 ROD FOR 3 WEEK FOLLOWED BY A WEEK FREE BREAK
     Route: 067
     Dates: start: 2011

REACTIONS (3)
  - Incorrect drug administration duration [Unknown]
  - Device expulsion [Unknown]
  - No adverse event [Unknown]
